FAERS Safety Report 8496473-8 (Version None)
Quarter: 2012Q3

REPORT INFORMATION
  Report Type: 
  Country: None (occurrence: None)
  Receive Date: 20120709
  Receipt Date: 20120629
  Transmission Date: 20120928
  Serious: Yes (Other)
  Sender: FDA-Public Use
  Company Number: DE-JNJFOC-20120702645

PATIENT
  Age: 56 Year
  Sex: Male
  Weight: 175 kg

DRUGS (1)
  1. IBUPROFEN [Suspect]
     Indication: SCIATICA
     Route: 048
     Dates: start: 20101004, end: 20101005

REACTIONS (2)
  - INSOMNIA [None]
  - DYSPNOEA [None]
